FAERS Safety Report 13571215 (Version 1)
Quarter: 2017Q2

REPORT INFORMATION
  Report Type: Spontaneous
  Country: IL (occurrence: IL)
  Receive Date: 20170523
  Receipt Date: 20170523
  Transmission Date: 20170830
  Serious: Yes (Life-Threatening, Other)
  Sender: FDA-Public Use
  Company Number: IL-SHIRE-IL201710990

PATIENT
  Age: 33 Year
  Sex: Female

DRUGS (1)
  1. FIRAZYR [Suspect]
     Active Substance: ICATIBANT ACETATE
     Indication: LARYNGEAL OEDEMA
     Dosage: 30 MG, AS REQ^D
     Route: 058
     Dates: start: 20170516

REACTIONS (5)
  - Brain hypoxia [Unknown]
  - Off label use [Unknown]
  - Terminal state [Unknown]
  - Laryngeal oedema [Unknown]
  - Cardio-respiratory arrest [Unknown]

NARRATIVE: CASE EVENT DATE: 20170516
